FAERS Safety Report 8786134 (Version 2)
Quarter: 2013Q1

REPORT INFORMATION
  Report Type: Spontaneous
  Country: DE (occurrence: CA)
  Receive Date: 20120914
  Receipt Date: 20130308
  Transmission Date: 20140127
  Serious: Yes (Death)
  Sender: FDA-Public Use
  Company Number: CA-FRI-1000038547

PATIENT
  Age: 73 Year
  Sex: Male
  Weight: 120 kg

DRUGS (10)
  1. ROFLUMILAST [Suspect]
     Dosage: 500 MCG
     Route: 048
     Dates: start: 20120306
  2. BUDESONIDE W/FORMOTEROL FUMARATE [Concomitant]
     Indication: CHRONIC OBSTRUCTIVE PULMONARY DISEASE
     Dosage: 1200 MG
     Route: 055
  3. TIOTROPIUM BROMIDE [Concomitant]
     Indication: CHRONIC OBSTRUCTIVE PULMONARY DISEASE
     Route: 055
  4. SALBUTAMOL [Concomitant]
     Route: 055
  5. ATORVASTATIN [Concomitant]
     Dosage: 40 MG
     Route: 048
  6. FUROSEMIDE [Concomitant]
     Dosage: 40 MG
     Route: 048
  7. GLYBURIDE [Concomitant]
     Dosage: 5 MG
  8. METFORMIN [Concomitant]
     Dosage: 1000 MG
  9. SPIRONOLACTONE [Concomitant]
     Dosage: 25 MG
     Route: 048
  10. DIGOXIN [Concomitant]
     Dosage: 0.25 MG
     Route: 048

REACTIONS (2)
  - Death [Fatal]
  - Abdominal discomfort [Unknown]
